FAERS Safety Report 17909458 (Version 1)
Quarter: 2020Q2

REPORT INFORMATION
  Report Type: Spontaneous
  Country: US (occurrence: US)
  Receive Date: 20200617
  Receipt Date: 20200617
  Transmission Date: 20200714
  Serious: No
  Sender: FDA-Public Use
  Company Number: US-TEVA-2020-US-1550251

PATIENT
  Sex: Female

DRUGS (1)
  1. PROAIR HFA [Suspect]
     Active Substance: ALBUTEROL SULFATE
     Route: 065

REACTIONS (6)
  - Dyspnoea [Unknown]
  - Drug ineffective [Unknown]
  - Headache [Unknown]
  - Dizziness [Unknown]
  - Fall [Unknown]
  - Oxygen saturation decreased [Unknown]
